FAERS Safety Report 6631117-9 (Version None)
Quarter: 2010Q1

REPORT INFORMATION
  Report Type: 
  Country: None (occurrence: None)
  Receive Date: 20100309
  Receipt Date: 20100223
  Transmission Date: 20100710
  Serious: Yes (Hospitalization)
  Sender: FDA-Public Use
  Company Number: 10-013

PATIENT
  Age: 48 Year
  Sex: Female

DRUGS (3)
  1. DIVALPROEX EXTENDED-RELEASE [Suspect]
     Dosage: 1500 MG ONCE DAILY
  2. PROMETHAZINE [Concomitant]
  3. LORAZEPAM [Concomitant]

REACTIONS (3)
  - EOSINOPHILIA [None]
  - PLEURAL EFFUSION [None]
  - PLEURISY [None]
